FAERS Safety Report 8507264-3 (Version None)
Quarter: 2012Q3

REPORT INFORMATION
  Report Type: 
  Country: None (occurrence: None)
  Receive Date: 20120712
  Receipt Date: 20120709
  Transmission Date: 20120928
  Serious: Yes (Hospitalization, Other)
  Sender: FDA-Public Use
  Company Number: CA-ROCHE-1079828

PATIENT
  Sex: Male

DRUGS (10)
  1. IRBESARTAN [Concomitant]
     Dosage: DRUG NAME IS RATIO-IREBESARTAN
  2. GLYBURIDE [Concomitant]
     Indication: DIABETES MELLITUS
     Dosage: DRUG NAME IS TEVA-GLYBURIDE
  3. VICTOZA [Concomitant]
     Indication: DIABETES MELLITUS
  4. APO-BISOPROLOL [Concomitant]
  5. AMLODIPINE [Concomitant]
     Dosage: DRUG NAME IS MINT-AMLODIPINE
  6. ATORVASTATIN [Concomitant]
     Dosage: DRUG NAME IS RATIO-ATORVASTATIN
  7. FENOFIBRATE [Concomitant]
     Dosage: DRUG NAME IS TEVA-FENOFIBRATES-S
  8. VEMURAFENIB [Suspect]
     Indication: METASTATIC MALIGNANT MELANOMA
     Route: 048
     Dates: start: 20120602, end: 20120618
  9. ASPIRIN [Concomitant]
     Dosage: DRUG NAME IS ASAPHEN E.C.
  10. TEVA-PANTOPRAZOLE [Concomitant]

REACTIONS (6)
  - RASH [None]
  - CHOLECYSTITIS [None]
  - ABDOMINAL PAIN [None]
  - OEDEMA PERIPHERAL [None]
  - CHEST PAIN [None]
  - ARTHRALGIA [None]
